FAERS Safety Report 11715659 (Version 3)
Quarter: 2017Q1

REPORT INFORMATION
  Report Type: Spontaneous
  Country: US (occurrence: US)
  Receive Date: 20151109
  Receipt Date: 20170315
  Transmission Date: 20170428
  Serious: Yes (Other)
  Sender: FDA-Public Use
  Company Number: US-JNJFOC-20151100780

PATIENT
  Age: 10 Year
  Sex: Male

DRUGS (13)
  1. RISPERDAL [Suspect]
     Active Substance: RISPERIDONE
     Indication: AFFECTIVE DISORDER
     Dosage: 2 MG 1 TABLET DAILY FOR A WEEK AND THEN 0.5 MG ONCE A DAY FOR A WEEK
     Route: 048
     Dates: start: 20140115, end: 20140702
  2. RISPERDAL [Suspect]
     Active Substance: RISPERIDONE
     Indication: ATTENTION DEFICIT/HYPERACTIVITY DISORDER
     Dosage: 2 MG 1 TABLET DAILY FOR A WEEK AND THEN 0.5 MG ONCE A DAY FOR A WEEK
     Route: 048
     Dates: start: 20140115, end: 20140702
  3. RISPERIDONE. [Suspect]
     Active Substance: RISPERIDONE
     Indication: PRODUCT USED FOR UNKNOWN INDICATION
     Route: 048
  4. RISPERDAL [Suspect]
     Active Substance: RISPERIDONE
     Indication: AFFECTIVE DISORDER
     Route: 048
     Dates: start: 20130621, end: 20130721
  5. RISPERDAL [Suspect]
     Active Substance: RISPERIDONE
     Indication: AFFECTIVE DISORDER
     Route: 048
     Dates: start: 2012
  6. RISPERDAL [Suspect]
     Active Substance: RISPERIDONE
     Indication: ATTENTION DEFICIT/HYPERACTIVITY DISORDER
     Route: 048
     Dates: start: 2012
  7. RISPERDAL [Suspect]
     Active Substance: RISPERIDONE
     Indication: DISTURBANCE IN SOCIAL BEHAVIOUR
     Route: 048
     Dates: start: 20130621, end: 20130721
  8. INVEGA [Suspect]
     Active Substance: PALIPERIDONE
     Indication: ATTENTION DEFICIT/HYPERACTIVITY DISORDER
     Route: 048
     Dates: start: 201208, end: 201212
  9. RISPERDAL [Suspect]
     Active Substance: RISPERIDONE
     Indication: DISTURBANCE IN SOCIAL BEHAVIOUR
     Dosage: 2 MG 1 TABLET DAILY FOR A WEEK AND THEN 0.5 MG ONCE A DAY FOR A WEEK
     Route: 048
     Dates: start: 20140115, end: 20140702
  10. RISPERDAL [Suspect]
     Active Substance: RISPERIDONE
     Indication: ATTENTION DEFICIT/HYPERACTIVITY DISORDER
     Route: 048
     Dates: start: 20130621, end: 20130721
  11. DEPAKOTE [Suspect]
     Active Substance: DIVALPROEX SODIUM
     Indication: DRUG THERAPY
     Route: 048
  12. RISPERDAL [Suspect]
     Active Substance: RISPERIDONE
     Indication: DISTURBANCE IN SOCIAL BEHAVIOUR
     Route: 048
     Dates: start: 2012
  13. INVEGA [Suspect]
     Active Substance: PALIPERIDONE
     Indication: AUTISM SPECTRUM DISORDER
     Route: 048
     Dates: start: 201208, end: 201212

REACTIONS (7)
  - Suicidal ideation [Unknown]
  - Abnormal weight gain [Unknown]
  - Off label use [Unknown]
  - Gynaecomastia [Unknown]
  - Drug ineffective [Unknown]
  - Drug prescribing error [Unknown]
  - Product use issue [Unknown]

NARRATIVE: CASE EVENT DATE: 201208
